APPROVED DRUG PRODUCT: PROCAINAMIDE HYDROCHLORIDE
Active Ingredient: PROCAINAMIDE HYDROCHLORIDE
Strength: 500MG
Dosage Form/Route: CAPSULE;ORAL
Application: A089219 | Product #003
Applicant: ANI PHARMACEUTICALS INC
Approved: Jul 1, 1986 | RLD: No | RS: No | Type: DISCN